FAERS Safety Report 12364594 (Version 2)
Quarter: 2016Q2

REPORT INFORMATION
  Report Type: Spontaneous
  Country: KR (occurrence: KR)
  Receive Date: 20160513
  Receipt Date: 20160513
  Transmission Date: 20160815
  Serious: Yes (Hospitalization)
  Sender: FDA-Public Use
  Company Number: KR-BAYER-2016-085188

PATIENT
  Age: 68 Year
  Sex: Male

DRUGS (2)
  1. AVELOX [Suspect]
     Active Substance: MOXIFLOXACIN HYDROCHLORIDE
     Dosage: UNK
  2. VIGAMOX [Concomitant]
     Active Substance: MOXIFLOXACIN HYDROCHLORIDE
     Dosage: UNK

REACTIONS (5)
  - C-reactive protein increased [Recovering/Resolving]
  - Eye infection [Recovering/Resolving]
  - Pseudomonas infection [Recovering/Resolving]
  - Product use issue [None]
  - Conjunctival hyperaemia [Recovering/Resolving]
